FAERS Safety Report 7587977-0 (Version None)
Quarter: 2011Q3

REPORT INFORMATION
  Report Type: 
  Country: None (occurrence: None)
  Receive Date: 20110705
  Receipt Date: 20110628
  Transmission Date: 20111222
  Serious: No
  Sender: FDA-Public Use
  Company Number: US-PFIZER INC-2011144402

PATIENT
  Sex: Male
  Weight: 106.58 kg

DRUGS (3)
  1. VICODIN [Concomitant]
     Indication: PAIN
     Dosage: UNK
  2. VIAGRA [Suspect]
     Indication: ERECTILE DYSFUNCTION
     Dosage: 100 MG, AS NEEDED
     Route: 048
     Dates: start: 20110627
  3. VIAGRA [Suspect]
     Dosage: 600 MG, UNK
     Dates: start: 20110627

REACTIONS (3)
  - DRUG INEFFECTIVE [None]
  - INCORRECT DOSE ADMINISTERED [None]
  - RASH [None]
